FAERS Safety Report 4961869-5 (Version None)
Quarter: 2006Q1

REPORT INFORMATION
  Report Type: 
  Country: None (occurrence: None)
  Receive Date: 20060329
  Receipt Date: 20060316
  Transmission Date: 20060701
  Serious: Yes (Hospitalization, Other)
  Sender: FDA-Public Use
  Company Number: 2006AL000741

PATIENT
  Age: 11 Year
  Sex: Male

DRUGS (1)
  1. IBUPROFEN [Suspect]
     Indication: NASOPHARYNGITIS
     Dosage: 400 MG; PO
     Route: 048

REACTIONS (21)
  - AGGRESSION [None]
  - ALANINE AMINOTRANSFERASE INCREASED [None]
  - ANAPHYLACTIC REACTION [None]
  - ASPARTATE AMINOTRANSFERASE INCREASED [None]
  - ATRIAL FIBRILLATION [None]
  - BLOOD AMYLASE INCREASED [None]
  - COLLAGEN DISORDER [None]
  - CONFUSIONAL STATE [None]
  - CONJUNCTIVITIS [None]
  - DRUG HYPERSENSITIVITY [None]
  - FRACTURE [None]
  - GENERAL PHYSICAL HEALTH DETERIORATION [None]
  - LIPASE INCREASED [None]
  - LOSS OF CONSCIOUSNESS [None]
  - METABOLIC ACIDOSIS [None]
  - NAUSEA [None]
  - PERICARDIAL EFFUSION [None]
  - PLATELET COUNT DECREASED [None]
  - POOR PERIPHERAL CIRCULATION [None]
  - SEPSIS [None]
  - SYSTEMIC LUPUS ERYTHEMATOSUS [None]
